FAERS Safety Report 7824146-0 (Version None)
Quarter: 2011Q4

REPORT INFORMATION
  Report Type: 
  Country: None (occurrence: None)
  Receive Date: 20111019
  Receipt Date: 20111014
  Transmission Date: 20120403
  Serious: Yes (Other)
  Sender: FDA-Public Use
  Company Number: PHEH2011US07013

PATIENT
  Age: 63 Year
  Sex: Female

DRUGS (1)
  1. TOBI [Suspect]
     Dosage: 300 MG, TWICE DAILY IN A CYCLE OF 14 DAYS ON AND 14 DAYS OFF
     Dates: start: 20080410

REACTIONS (1)
  - PSEUDOMONAS INFECTION [None]
